FAERS Safety Report 7833448-3 (Version None)
Quarter: 2011Q4

REPORT INFORMATION
  Report Type: 
  Country: None (occurrence: None)
  Receive Date: 20111024
  Receipt Date: 20100623
  Transmission Date: 20120403
  Serious: No
  Sender: FDA-Public Use
  Company Number: US-BAYER-201026349NA

PATIENT
  Age: 61 Year
  Sex: Male

DRUGS (6)
  1. TOPROL-XL [Concomitant]
  2. ZESTRIL [Concomitant]
  3. CIPROFLOXACIN [Suspect]
     Dosage: UNK
     Route: 048
     Dates: start: 20100401
  4. SYNTHROID [Concomitant]
  5. NORVASC [Concomitant]
  6. PRAVACHOL [Concomitant]

REACTIONS (1)
  - PRE-EXISTING CONDITION IMPROVED [None]
